FAERS Safety Report 20890581 (Version 1)
Quarter: 2022Q2

REPORT INFORMATION
  Report Type: Spontaneous
  Country: JP (occurrence: JP)
  Receive Date: 20220530
  Receipt Date: 20220530
  Transmission Date: 20220720
  Serious: Yes (Death, Hospitalization, Other)
  Sender: FDA-Public Use
  Company Number: JP-ONO-2022JP014509

PATIENT
  Age: 90 Year
  Sex: Male
  Weight: 55.2 kg

DRUGS (11)
  1. PARSABIV [Suspect]
     Active Substance: ETELCALCETIDE HYDROCHLORIDE
     Indication: Hyperparathyroidism secondary
     Dosage: UNK
     Route: 010
  2. EPOETIN ALFA [Concomitant]
     Active Substance: ERYTHROPOIETIN
     Dosage: 2250 IU, QW
     Route: 065
     Dates: end: 20200314
  3. DARBEPOETIN ALFA [Concomitant]
     Active Substance: DARBEPOETIN ALFA
     Dosage: 5 MUG, QW
     Route: 065
     Dates: start: 20200321, end: 20200423
  4. DARBEPOETIN ALFA [Concomitant]
     Active Substance: DARBEPOETIN ALFA
     Dosage: 10 MUG, QW
     Route: 065
     Dates: start: 20200425, end: 20200917
  5. DARBEPOETIN ALFA [Concomitant]
     Active Substance: DARBEPOETIN ALFA
     Dosage: 5 MUG, QW
     Route: 065
     Dates: start: 20200919, end: 20210508
  6. DARBEPOETIN ALFA [Concomitant]
     Active Substance: DARBEPOETIN ALFA
     Dosage: 10 MUG, QW
     Route: 065
     Dates: start: 20210515, end: 20211113
  7. DARBEPOETIN ALFA [Concomitant]
     Active Substance: DARBEPOETIN ALFA
     Dosage: 5 MUG, QW
     Route: 065
     Dates: start: 20211120, end: 20211218
  8. ALFAROL [Concomitant]
     Active Substance: ALFACALCIDOL
     Indication: Hyperparathyroidism secondary
     Dosage: 0.25 MUG, EVERYDAY
     Route: 048
  9. EVOCALCET [Concomitant]
     Active Substance: EVOCALCET
     Indication: Hyperparathyroidism secondary
     Dosage: 1 MG, EVERYDAY
     Route: 048
     Dates: start: 20201225
  10. FERRIC CITRATE ANHYDROUS [Concomitant]
     Active Substance: FERRIC CITRATE ANHYDROUS
     Dosage: 750 MG, EVERYDAY
     Route: 065
  11. Musredo [Concomitant]
     Dosage: 75 MG, EVERYDAY
     Route: 065
     Dates: start: 20211216

REACTIONS (1)
  - Cerebral infarction [Fatal]

NARRATIVE: CASE EVENT DATE: 20220105
